FAERS Safety Report 7947989-1 (Version None)
Quarter: 2011Q4

REPORT INFORMATION
  Report Type: 
  Country: None (occurrence: None)
  Receive Date: 20111130
  Receipt Date: 20111122
  Transmission Date: 20120403
  Serious: Yes (Hospitalization, Other)
  Sender: FDA-Public Use
  Company Number: FR-JNJFOC-20111111139

PATIENT
  Age: 86 Year
  Sex: Male

DRUGS (3)
  1. ZOLPIDEM [Concomitant]
     Route: 065
  2. RISPERDAL CONSTA [Suspect]
     Indication: SCHIZOAFFECTIVE DISORDER
     Route: 030
  3. VALIUM [Concomitant]
     Route: 065

REACTIONS (1)
  - PULMONARY EMBOLISM [None]
